FAERS Safety Report 6999049-4 (Version None)
Quarter: 2010Q3

REPORT INFORMATION
  Report Type: 
  Country: None (occurrence: None)
  Receive Date: 20100920
  Receipt Date: 20100907
  Transmission Date: 20110219
  Serious: Yes (Hospitalization)
  Sender: FDA-Public Use
  Company Number: US-ELI_LILLY_AND_COMPANY-US201006007909

PATIENT
  Sex: Female

DRUGS (18)
  1. FORTEO [Suspect]
     Indication: OSTEOPOROSIS
     Dosage: 20 UG, DAILY (1/D)
     Dates: start: 20091007
  2. FORTEO [Suspect]
     Dosage: 20 UG, DAILY (1/D)
  3. CALCIUM W/VITAMIN D NOS [Concomitant]
     Dosage: 5000 MG, 3/D
  4. IRON [Concomitant]
     Dosage: 65 MG, DAILY (1/D)
  5. MULTI-VITAMIN [Concomitant]
     Dosage: UNK, DAILY (1/D)
  6. DULCOLAX [Concomitant]
     Dosage: 10 MG, EACH EVENING
  7. PACERONE [Concomitant]
     Dosage: 200 MG, DAILY (1/D)
  8. CARDIZEM [Concomitant]
     Dosage: 240 MG, DAILY (1/D)
  9. POTASSIUM [Concomitant]
     Dosage: 20 MG, DAILY (1/D)
  10. NEURONTIN [Concomitant]
     Dosage: 300 MG, DAILY (1/D)
  11. PRILOSEC [Concomitant]
     Dosage: 40 MG, DAILY (1/D)
  12. FUROSEMIDE [Concomitant]
     Dosage: 40 MG, DAILY (1/D)
  13. SYNTHROID [Concomitant]
     Dosage: 25 MG, DAILY (1/D)
  14. DARVOCET [Concomitant]
     Dosage: UNK, AS NEEDED
  15. CORTIZONE [Concomitant]
     Indication: MUSCULOSKELETAL PAIN
  16. VITAMIN B12 NOS [Concomitant]
  17. NAPROSYN [Concomitant]
  18. CALCIUM [Concomitant]

REACTIONS (5)
  - ARTHRITIS [None]
  - COLON ADENOMA [None]
  - DRUG ADMINISTRATION ERROR [None]
  - PAIN IN EXTREMITY [None]
  - STRESS [None]
